FAERS Safety Report 5175895-7 (Version None)
Quarter: 2006Q4

REPORT INFORMATION
  Report Type: 
  Country: None (occurrence: None)
  Receive Date: 20061215
  Receipt Date: 20061129
  Transmission Date: 20070319
  Serious: Yes (Other)
  Sender: FDA-Public Use
  Company Number: FR-GLAXOSMITHKLINE-B0449133A

PATIENT
  Age: 52 Year
  Sex: Female
  Weight: 50 kg

DRUGS (7)
  1. MALARONE [Suspect]
     Indication: MALARIA PROPHYLAXIS
     Dosage: 1TAB PER DAY
     Route: 048
     Dates: start: 20061117, end: 20061201
  2. PAROXETINE HCL [Concomitant]
     Dosage: 20MG PER DAY
     Route: 048
     Dates: start: 20001120
  3. ALPRAZOLAM [Concomitant]
     Indication: ANXIETY
     Dosage: .25MG TWICE PER DAY
     Route: 048
     Dates: start: 20001120
  4. PIASCLEDINE [Concomitant]
     Indication: MUSCULOSKELETAL PAIN
     Dosage: 300MG PER DAY
     Route: 048
     Dates: start: 20021227
  5. INIPOMP [Concomitant]
     Dosage: 20MG PER DAY
     Route: 048
     Dates: start: 20050124
  6. BREXIN [Concomitant]
     Indication: MUSCULOSKELETAL PAIN
     Dosage: 20MG AS REQUIRED
     Route: 048
     Dates: start: 20050124
  7. DIOSMINE [Concomitant]
     Indication: VENOUS INSUFFICIENCY
     Dosage: 20MG PER DAY
     Route: 048
     Dates: start: 20001120

REACTIONS (2)
  - FEELING HOT [None]
  - PETIT MAL EPILEPSY [None]
